FAERS Safety Report 6006215-3 (Version None)
Quarter: 2008Q4

REPORT INFORMATION
  Report Type: 
  Country: None (occurrence: None)
  Receive Date: 20081217
  Receipt Date: 20071228
  Transmission Date: 20090506
  Serious: No
  Sender: FDA-Public Use
  Company Number: US-AMGEN-KDL258554

PATIENT
  Sex: Female

DRUGS (3)
  1. ENBREL [Suspect]
     Indication: ANKYLOSING SPONDYLITIS
     Route: 058
     Dates: start: 20071118
  2. METHOTREXATE [Concomitant]
     Route: 048
     Dates: start: 20070101
  3. PLAQUENIL [Concomitant]
     Route: 048
     Dates: start: 20070101

REACTIONS (2)
  - NASAL CONGESTION [None]
  - RHINORRHOEA [None]
